FAERS Safety Report 4544107-7 (Version None)
Quarter: 2005Q1

REPORT INFORMATION
  Report Type: 
  Country: None (occurrence: None)
  Receive Date: 20050104
  Receipt Date: 20041229
  Transmission Date: 20050727
  Serious: Yes (Life-Threatening, Hospitalization)
  Sender: FDA-Public Use
  Company Number: US-MERCK-0412USA03233

PATIENT
  Age: 67 Year
  Sex: Female

DRUGS (5)
  1. VIOXX [Suspect]
     Indication: MONARTHRITIS
     Route: 048
     Dates: start: 20030201, end: 20040601
  2. VIOXX [Suspect]
     Indication: ARTHRITIS
     Route: 048
     Dates: start: 20030201, end: 20040601
  3. SYNTHROID [Concomitant]
     Route: 065
  4. PROVERA [Concomitant]
     Route: 065
  5. PREMARIN [Concomitant]
     Route: 065

REACTIONS (2)
  - CHEST PAIN [None]
  - DYSPNOEA [None]
